FAERS Safety Report 7365023-1 (Version None)
Quarter: 2011Q1

REPORT INFORMATION
  Report Type: 
  Country: None (occurrence: None)
  Receive Date: 20110321
  Receipt Date: 20110310
  Transmission Date: 20110831
  Serious: Yes (Hospitalization)
  Sender: FDA-Public Use
  Company Number: US-ASTRAZENECA-2011SE13746

PATIENT
  Age: 75 Year
  Sex: Female

DRUGS (2)
  1. UNSPECIFIED [Suspect]
     Route: 065
  2. TOPROL-XL [Suspect]
     Route: 048

REACTIONS (2)
  - HEART RATE INCREASED [None]
  - HEART VALVE REPLACEMENT [None]
